FAERS Safety Report 9664216 (Version 1)
Quarter: 2013Q4

REPORT INFORMATION
  Report Type: Spontaneous
  Country: GB (occurrence: GB)
  Receive Date: 20131101
  Receipt Date: 20131101
  Transmission Date: 20140711
  Serious: Yes (Other)
  Sender: FDA-Public Use
  Company Number: GB-TEVA-439952ISR

PATIENT
  Age: 54 Year
  Sex: Female

DRUGS (2)
  1. METOCLOPRAMIDE [Suspect]
     Indication: IRRITABLE BOWEL SYNDROME
     Dosage: 40 MILLIGRAM DAILY;
     Route: 048
     Dates: start: 2005
  2. METOCLOPRAMIDE [Suspect]
     Dosage: 30 MILLIGRAM DAILY; 10 MG, TID
     Route: 048
     Dates: end: 201306

REACTIONS (12)
  - Suicidal ideation [Unknown]
  - Mood altered [Unknown]
  - Dyskinesia [Unknown]
  - Muscle spasms [Unknown]
  - Weight decreased [Unknown]
  - Feeling of body temperature change [Unknown]
  - Drug withdrawal syndrome [Unknown]
  - Depression [Unknown]
  - Dry mouth [Unknown]
  - Intentional self-injury [Unknown]
  - Tremor [Unknown]
  - Cold sweat [Unknown]
